FAERS Safety Report 7009305-1 (Version None)
Quarter: 2010Q3

REPORT INFORMATION
  Report Type: 
  Country: None (occurrence: None)
  Receive Date: 20100923
  Receipt Date: 20100910
  Transmission Date: 20110219
  Serious: Yes (Other)
  Sender: FDA-Public Use
  Company Number: US-ELI_LILLY_AND_COMPANY-US201008004719

PATIENT
  Age: 14 Year
  Sex: Female
  Weight: 51.701 kg

DRUGS (2)
  1. STRATTERA [Suspect]
     Indication: ATTENTION DEFICIT/HYPERACTIVITY DISORDER
  2. ANTIPSYCHOTICS [Concomitant]

REACTIONS (1)
  - SUICIDE ATTEMPT [None]
